FAERS Safety Report 7444126-7 (Version None)
Quarter: 2011Q2

REPORT INFORMATION
  Report Type: 
  Country: None (occurrence: None)
  Receive Date: 20110419
  Receipt Date: 20110407
  Transmission Date: 20111010
  Serious: Yes (Other)
  Sender: FDA-Public Use
  Company Number: 2011SP011849

PATIENT
  Age: 75 Year
  Sex: Male

DRUGS (6)
  1. FUROSEMIDE [Concomitant]
  2. AVELOX [Concomitant]
  3. CIPROFLOXACIN [Concomitant]
  4. TEMODAL [Suspect]
     Indication: ACUTE MYELOID LEUKAEMIA
     Dosage: 405 MG
     Dates: start: 20090107, end: 20090113
  5. CLINDAMYCIN [Concomitant]
  6. NAPROSYN [Concomitant]

REACTIONS (2)
  - PNEUMONIA [None]
  - PSEUDOMONAL SEPSIS [None]
